FAERS Safety Report 7779726-8 (Version None)
Quarter: 2011Q3

REPORT INFORMATION
  Report Type: 
  Country: None (occurrence: None)
  Receive Date: 20110927
  Receipt Date: 20110922
  Transmission Date: 20111222
  Serious: Yes (Death, Congenital Anomaly, Other)
  Sender: FDA-Public Use
  Company Number: ZA-PFIZER INC-2011226607

PATIENT

DRUGS (1)
  1. LYRICA [Suspect]
     Dosage: UNK
     Route: 050

REACTIONS (2)
  - CARDIOMYOPATHY [None]
  - MATERNAL EXPOSURE DURING PREGNANCY [None]
